FAERS Safety Report 5231831-6 (Version None)
Quarter: 2007Q1

REPORT INFORMATION
  Report Type: 
  Country: None (occurrence: None)
  Receive Date: 20070206
  Receipt Date: 20070126
  Transmission Date: 20070707
  Serious: Yes (Hospitalization, Other)
  Sender: FDA-Public Use
  Company Number: US-PFIZER INC-2006136447

PATIENT
  Sex: Female
  Weight: 88.5 kg

DRUGS (1)
  1. CELEBREX [Suspect]
     Indication: TENDONITIS
     Dosage: DAILY DOSE:2400MG-TEXT:200MG, 12 PILLS ONCE DAILY
     Dates: start: 20030805, end: 20040524

REACTIONS (5)
  - AMNESIA [None]
  - CARDIOVASCULAR DISORDER [None]
  - DEPRESSION [None]
  - INJURY [None]
  - MYOCARDIAL INFARCTION [None]
